FAERS Safety Report 24720870 (Version 1)
Quarter: 2024Q4

REPORT INFORMATION
  Report Type: Spontaneous
  Country: GB (occurrence: GB)
  Receive Date: 20241211
  Receipt Date: 20241211
  Transmission Date: 20250115
  Serious: Yes (Other)
  Sender: AUROBINDO
  Company Number: GB-MHRA-TPP24032770C11335824YC1732538613756

PATIENT
  Age: 73 Year
  Sex: Female
  Weight: 86 kg

DRUGS (16)
  1. CEPHALEXIN [Suspect]
     Active Substance: CEPHALEXIN
     Indication: Ill-defined disorder
     Dosage: UNK
     Route: 065
     Dates: start: 20241122
  2. AMOXICILLIN [Concomitant]
     Active Substance: AMOXICILLIN
     Indication: Ill-defined disorder
     Dosage: 1 DOSAGE FORM, 3 TIMES A DAY (FOR UTI)
     Route: 065
     Dates: start: 20241104
  3. TRIMETHOPRIM [Concomitant]
     Active Substance: TRIMETHOPRIM
     Indication: Ill-defined disorder
     Dosage: 1 DOSAGE FORM, TWO TIMES A DAY
     Route: 065
     Dates: start: 20241002
  4. FOSFOMYCIN [Concomitant]
     Active Substance: FOSFOMYCIN
     Indication: Ill-defined disorder
     Dosage: 1 DOSAGE FORM (NOW AND THEN 48 HOURS LATER)
     Route: 065
     Dates: start: 20241119
  5. CARBOMER [Concomitant]
     Active Substance: CARBOMER
     Indication: Ill-defined disorder
     Dosage: UNK UNK, TWO TIMES A DAY (APPLY TO BOTH EYES)
     Route: 065
     Dates: start: 20150626
  6. Clinitas [Concomitant]
     Indication: Ill-defined disorder
     Dosage: 1 DOSAGE FORM, FOUR TIMES/DAY (INTO EACH EYE)
     Route: 065
     Dates: start: 20160111
  7. RANITIDINE HYDROCHLORIDE [Concomitant]
     Active Substance: RANITIDINE HYDROCHLORIDE
     Indication: Ill-defined disorder
     Dosage: ONE OR TWO 5ML SPOONFULS TO BE TAKEN AFTER MEAL
     Route: 065
     Dates: start: 20180703
  8. Hydromol [Concomitant]
     Indication: Ill-defined disorder
     Dosage: APPLY TO SKIN OR USE AS A SOAP SUBSTITUTE
     Route: 065
     Dates: start: 20191017
  9. CALCIUM CARBONATE\CHOLECALCIFEROL [Concomitant]
     Active Substance: CALCIUM CARBONATE\CHOLECALCIFEROL
     Indication: Ill-defined disorder
     Dosage: 1 DOSAGE FORM, TWO TIMES A DAY
     Route: 065
     Dates: start: 20191122
  10. XAILIN NIGHT [Concomitant]
     Indication: Ill-defined disorder
     Dosage: PUT A SMALL AMOUNT INTO THE AFFECTED EYE(S) AT ...
     Route: 065
     Dates: start: 20200131
  11. PIROXICAM [Concomitant]
     Active Substance: PIROXICAM
     Indication: Ill-defined disorder
     Dosage: APPLY THREE OR FOUR TIMES A DAY TO TENDER AREAS
     Route: 065
     Dates: start: 20210719
  12. ISPAGHULA EXTRACT\PSYLLIUM [Concomitant]
     Active Substance: HERBALS\PLANTAGO OVATA SEED\PLANTAGO SEED
     Indication: Ill-defined disorder
     Dosage: 1 DOSAGE FORM (IN WATER A DAY AFTER FOOD)
     Route: 065
     Dates: start: 20230116
  13. LOSARTAN [Concomitant]
     Active Substance: LOSARTAN
     Indication: Ill-defined disorder
     Dosage: 1 DOSAGE FORM, ONCE A DAY
     Route: 065
     Dates: start: 20230119
  14. SODIUM CHLORIDE [Concomitant]
     Active Substance: SODIUM CHLORIDE
     Indication: Ill-defined disorder
     Dosage: 4 MILLILITER, TWO TIMES A DAY (ONCE OR TWICE A WEEK AS DIRECTED)
     Route: 065
     Dates: start: 20230809
  15. VAGIFEM [Concomitant]
     Active Substance: ESTRADIOL
     Indication: Ill-defined disorder
     Dosage: 1 DOSAGE FORM (TO BE INSERTED TWICE A WEEK)
     Route: 065
     Dates: start: 20231218
  16. CETIRIZINE [Concomitant]
     Active Substance: CETIRIZINE HYDROCHLORIDE
     Indication: Ill-defined disorder
     Dosage: 1 DOSAGE FORM, DAILY
     Route: 065
     Dates: start: 20240628

REACTIONS (1)
  - Haemorrhage urinary tract [Not Recovered/Not Resolved]
